FAERS Safety Report 16279070 (Version 1)
Quarter: 2019Q2

REPORT INFORMATION
  Report Type: Spontaneous
  Country: SE (occurrence: SE)
  Receive Date: 20190506
  Receipt Date: 20190506
  Transmission Date: 20190711
  Serious: Yes (Other)
  Sender: FDA-Public Use
  Company Number: SE-TAKEDA-2019TUS027861

PATIENT
  Age: 61 Year
  Sex: Male

DRUGS (6)
  1. BRINTELLIX [Suspect]
     Active Substance: VORTIOXETINE HYDROBROMIDE
     Indication: ANXIETY
     Dosage: 15 MILLIGRAM, QD
     Route: 048
     Dates: start: 20181025
  2. LORATADIN HEXAL [Concomitant]
     Active Substance: LORATADINE
     Indication: HYPERSENSITIVITY
     Dosage: UNK
     Route: 065
     Dates: start: 20140509
  3. BRINTELLIX [Suspect]
     Active Substance: VORTIOXETINE HYDROBROMIDE
     Indication: DEPRESSION
  4. DESONIX [Concomitant]
     Indication: HYPERSENSITIVITY
     Dosage: UNK
     Route: 065
     Dates: start: 20140509
  5. EMADINE [Concomitant]
     Active Substance: EMEDASTINE DIFUMARATE
     Indication: SEASONAL ALLERGY
     Dosage: 4 GTT DROPS, QD
     Route: 065
     Dates: start: 20140509
  6. KARBASAL [Concomitant]
     Indication: PRODUCT USED FOR UNKNOWN INDICATION
     Dosage: UNK
     Route: 065
     Dates: start: 20150127

REACTIONS (1)
  - Peripheral coldness [Not Recovered/Not Resolved]

NARRATIVE: CASE EVENT DATE: 201810
